FAERS Safety Report 8847350 (Version 2)
Quarter: 2012Q4

REPORT INFORMATION
  Report Type: 
  Country: JP (occurrence: JP)
  Receive Date: 20121018
  Receipt Date: 20121228
  Transmission Date: 20130627
  Serious: Yes (Death, Other)
  Sender: FDA-Public Use
  Company Number: PHHY2012JP091663

PATIENT
  Sex: Female

DRUGS (7)
  1. METHOTREXATE [Suspect]
     Indication: GRAFT VERSUS HOST DISEASE
     Dosage: 10 mg/m2, UNK
  2. METHOTREXATE [Suspect]
     Dosage: 7 mg/m2, UNK
  3. CICLOSPORIN [Suspect]
     Indication: GRAFT VERSUS HOST DISEASE
  4. PREDNISOLONE [Suspect]
     Indication: GRAFT VERSUS HOST DISEASE
     Dosage: 1 mg/kg, UNK
  5. TACROLIMUS [Suspect]
     Indication: GRAFT VERSUS HOST DISEASE
  6. FLUDARABINE PHOSPHATE [Concomitant]
     Dosage: 180 mg/m2, UNK
  7. BUSULPHAN [Concomitant]
     Dosage: 6.4 mg/kg, UNK
     Route: 042

REACTIONS (16)
  - Graft versus host disease in intestine [Fatal]
  - Portal venous gas [Fatal]
  - Abdominal pain [Fatal]
  - Diarrhoea [Fatal]
  - Haemorrhagic ascites [Fatal]
  - Gastric ulcer [Fatal]
  - Hepatic necrosis [Fatal]
  - Gastrointestinal haemorrhage [Fatal]
  - Pneumatosis intestinalis [Fatal]
  - Pulmonary alveolar haemorrhage [Unknown]
  - Septic shock [Unknown]
  - Aspergillosis [Unknown]
  - Cytomegalovirus infection [Unknown]
  - Acute graft versus host disease in skin [Unknown]
  - Pyrexia [Unknown]
  - Haemoptysis [Unknown]
